FAERS Safety Report 6297204-2 (Version None)
Quarter: 2009Q3

REPORT INFORMATION
  Report Type: 
  Country: None (occurrence: None)
  Receive Date: 20090804
  Receipt Date: 20090804
  Transmission Date: 20100115
  Serious: Yes (Hospitalization, Disabling)
  Sender: FDA-Public Use
  Company Number: None

PATIENT
  Sex: Female
  Weight: 122.4712 kg

DRUGS (1)
  1. DIGOXIN [Suspect]
     Indication: CARDIAC FAILURE CONGESTIVE
     Dosage: 0.125 MG TAB, ONCE A DAY
     Dates: start: 20060101

REACTIONS (4)
  - DYSPNOEA [None]
  - HEART RATE DECREASED [None]
  - HEART RATE INCREASED [None]
  - HEART RATE IRREGULAR [None]
